FAERS Safety Report 10496273 (Version 1)
Quarter: 2014Q4

REPORT INFORMATION
  Report Type: Report from Study
  Country: CA (occurrence: CA)
  Receive Date: 20141003
  Receipt Date: 20141003
  Transmission Date: 20150528
  Serious: Yes (Other)
  Sender: FDA-Public Use
  Company Number: CA-GILEAD-2014-0116830

PATIENT
  Age: 43 Year
  Sex: Female

DRUGS (2)
  1. SOFOSBUVIR [Suspect]
     Active Substance: SOFOSBUVIR
     Indication: HEPATITIS C
     Dosage: 400 MG, UNK
     Route: 065
     Dates: end: 20140926
  2. PEGETRON [Suspect]
     Active Substance: PEGINTERFERON ALFA-2B\RIBAVIRIN
     Indication: HEPATITIS C
     Dosage: UNK
     Route: 065
     Dates: end: 20140923

REACTIONS (9)
  - Vertigo [Unknown]
  - Vomiting [Unknown]
  - Dyspnoea [Unknown]
  - Hypertension [Unknown]
  - Pain [Unknown]
  - Anaemia [Unknown]
  - Migraine [Unknown]
  - Feeding disorder [Unknown]
  - Impaired self-care [Unknown]
